FAERS Safety Report 15311009 (Version 1)
Quarter: 2018Q3

REPORT INFORMATION
  Report Type: Spontaneous
  Country: US (occurrence: US)
  Receive Date: 20180814
  Receipt Date: 20180814
  Transmission Date: 20181010
  Serious: Yes (Disabling)
  Sender: FDA-Public Use
  Company Number: None

PATIENT
  Age: 61 Year
  Sex: Female
  Weight: 86.4 kg

DRUGS (19)
  1. SUPER B [Concomitant]
  2. BENADRYL [Concomitant]
     Active Substance: DIPHENHYDRAMINE HYDROCHLORIDE
  3. NITROFURANTN [Suspect]
     Active Substance: NITROFURANTOIN
     Indication: URINARY TRACT INFECTION
     Dosage: ?          QUANTITY:14 CAPSULE(S);?
     Route: 048
     Dates: start: 20180808, end: 20180814
  4. C [Concomitant]
  5. CALCIUM [Concomitant]
     Active Substance: CALCIUM
  6. CONNAMON [Concomitant]
  7. VITAMIN D3 [Concomitant]
     Active Substance: CHOLECALCIFEROL
  8. ACTOS [Concomitant]
     Active Substance: PIOGLITAZONE HYDROCHLORIDE
  9. ACYCLOVIR. [Concomitant]
     Active Substance: ACYCLOVIR
  10. OXYBUTYNIN. [Concomitant]
     Active Substance: OXYBUTYNIN CHLORIDE
  11. MAGNESIUM [Concomitant]
     Active Substance: MAGNESIUM
  12. MULTI?VIT/MINERAL [Concomitant]
  13. OMEGA 369 [Concomitant]
     Active Substance: FISH OIL
  14. RALOXIFENE. [Concomitant]
     Active Substance: RALOXIFENE
  15. ATORVASTATIN [Concomitant]
     Active Substance: ATORVASTATIN
  16. AMITRIPTILENE [Concomitant]
  17. SPIRANOLACTONE [Concomitant]
     Active Substance: SPIRONOLACTONE
  18. MIRAPEX [Concomitant]
     Active Substance: PRAMIPEXOLE DIHYDROCHLORIDE
  19. TALTZ [Concomitant]
     Active Substance: IXEKIZUMAB

REACTIONS (2)
  - Rash [None]
  - Skin weeping [None]

NARRATIVE: CASE EVENT DATE: 20180809
